FAERS Safety Report 4590719-4 (Version None)
Quarter: 2005Q1

REPORT INFORMATION
  Report Type: 
  Country: None (occurrence: None)
  Receive Date: 20050224
  Receipt Date: 20040224
  Transmission Date: 20050727
  Serious: Yes (Death)
  Sender: FDA-Public Use
  Company Number: US-MERCK-0402USA01838

PATIENT
  Age: 73 Year
  Sex: Female

DRUGS (14)
  1. VIOXX [Suspect]
     Indication: ARTHRITIS
     Route: 048
     Dates: start: 20000828, end: 20030220
  2. POTASSIUM CHLORIDE [Concomitant]
     Route: 048
  3. ALDOMET [Concomitant]
     Route: 048
  4. COLCHICINE [Concomitant]
     Route: 048
  5. CLORPRES [Concomitant]
     Route: 048
  6. SYNTHROID [Concomitant]
     Route: 048
  7. MAGNESIUM SULFATE [Concomitant]
     Route: 048
  8. PREMARIN [Concomitant]
     Route: 048
  9. ALLEGRA [Concomitant]
     Route: 065
  10. ACETAMINOPHEN AND CODEINE [Concomitant]
     Route: 065
  11. LOTREL [Concomitant]
     Route: 065
  12. VIOXX [Suspect]
     Route: 048
     Dates: start: 20000110
  13. VIOXX [Suspect]
     Route: 048
     Dates: start: 20020710, end: 20020701
  14. VIOXX [Suspect]
     Route: 048
     Dates: start: 20020111, end: 20030310

REACTIONS (12)
  - BLOOD PRESSURE FLUCTUATION [None]
  - BUNDLE BRANCH BLOCK RIGHT [None]
  - CARDIAC ARREST [None]
  - CHONDROCALCINOSIS PYROPHOSPHATE [None]
  - ERYTHEMA [None]
  - HYPERTENSION [None]
  - HYPOMAGNESAEMIA [None]
  - MYOCARDIAL INFARCTION [None]
  - OEDEMA PERIPHERAL [None]
  - OSTEOPOROSIS [None]
  - SWELLING FACE [None]
  - VENTRICULAR FIBRILLATION [None]
